FAERS Safety Report 9057354 (Version 1)
Quarter: 2013Q1

REPORT INFORMATION
  Report Type: Spontaneous
  Country: GB (occurrence: GB)
  Receive Date: 20130204
  Receipt Date: 20130204
  Transmission Date: 20140127
  Serious: Yes (Hospitalization)
  Sender: FDA-Public Use
  Company Number: PHHY2013GB008672

PATIENT
  Age: 75 Year
  Sex: Female

DRUGS (6)
  1. CIPROFLOXACIN [Suspect]
     Indication: CELLULITIS
     Dosage: 500 MG, BID
     Route: 048
     Dates: start: 20121227, end: 20121231
  2. MORPHINE SULFATE [Concomitant]
  3. SPIRONOLACTONE [Concomitant]
  4. LEVOTHYROXINE SODIUM [Concomitant]
  5. CITALOPRAM [Concomitant]
  6. FUROSEMIDE [Concomitant]

REACTIONS (6)
  - Drug eruption [Not Recovered/Not Resolved]
  - Glomerular filtration rate decreased [Not Recovered/Not Resolved]
  - Pain of skin [Not Recovered/Not Resolved]
  - Renal failure acute [Not Recovered/Not Resolved]
  - Urticaria [Not Recovered/Not Resolved]
  - Rash pruritic [Not Recovered/Not Resolved]
